FAERS Safety Report 8616709-X (Version None)
Quarter: 2012Q3

REPORT INFORMATION
  Report Type: 
  Country: None (occurrence: None)
  Receive Date: 20120823
  Receipt Date: 20120802
  Transmission Date: 20120928
  Serious: No
  Sender: FDA-Public Use
  Company Number: US-009507513-1208USA002416

PATIENT

DRUGS (5)
  1. MAPAP PM [Concomitant]
  2. VITAMINS (UNSPECIFIED) [Concomitant]
  3. RIBAVIRIN [Concomitant]
  4. VICTRELIS [Suspect]
     Indication: HEPATITIS C
     Dosage: 800 MG, TID
     Route: 048
     Dates: start: 20120727
  5. PEG-INTRON [Suspect]
     Route: 058

REACTIONS (1)
  - FATIGUE [None]
